FAERS Safety Report 19092452 (Version 6)
Quarter: 2021Q4

REPORT INFORMATION
  Report Type: Spontaneous
  Country: ES (occurrence: ES)
  Receive Date: 20210405
  Receipt Date: 20211110
  Transmission Date: 20220304
  Serious: Yes (Hospitalization)
  Sender: FDA-Public Use
  Company Number: ES-ROCHE-2779802

PATIENT
  Age: 68 Year
  Sex: Female

DRUGS (9)
  1. CARBOPLATIN [Suspect]
     Active Substance: CARBOPLATIN
     Indication: HER2 positive breast cancer
     Dosage: 251.36 MG
     Route: 042
     Dates: start: 20201209, end: 20210129
  2. PACLITAXEL [Suspect]
     Active Substance: PACLITAXEL
     Indication: HER2 positive breast cancer
     Dosage: 90 MG/M2
     Route: 042
     Dates: start: 20201209, end: 20210129
  3. PACLITAXEL [Suspect]
     Active Substance: PACLITAXEL
     Dosage: 172 MG
     Route: 042
     Dates: start: 20201209, end: 20210129
  4. TRASTUZUMAB [Suspect]
     Active Substance: TRASTUZUMAB
     Indication: HER2 positive breast cancer
     Dosage: 8 MG/KG
     Route: 042
     Dates: start: 20201209, end: 20201209
  5. TRASTUZUMAB [Suspect]
     Active Substance: TRASTUZUMAB
     Dosage: 6 MG/KG
     Route: 042
     Dates: start: 20201210, end: 20210122
  6. TRASTUZUMAB [Suspect]
     Active Substance: TRASTUZUMAB
     Dosage: 534 MG
     Route: 042
     Dates: start: 20201210, end: 20210122
  7. ATEZOLIZUMAB [Suspect]
     Active Substance: ATEZOLIZUMAB
     Indication: HER2 positive breast cancer
     Dosage: 1200 MG, EVERY 3 WEEKS
     Route: 041
     Dates: start: 20200924, end: 20210122
  8. PERTUZUMAB [Concomitant]
     Active Substance: PERTUZUMAB
     Indication: HER2 positive breast cancer
     Dosage: 840 MG (LOADING DOSE)
     Route: 042
     Dates: start: 20201209, end: 20201209
  9. PERTUZUMAB [Concomitant]
     Active Substance: PERTUZUMAB
     Dosage: 420 MG
     Route: 042
     Dates: start: 20201210, end: 20210122

REACTIONS (1)
  - Acute kidney injury [Recovered/Resolved with Sequelae]

NARRATIVE: CASE EVENT DATE: 20210221
